FAERS Safety Report 11285247 (Version 2)
Quarter: 2015Q3

REPORT INFORMATION
  Report Type: Report from Study
  Country: AR (occurrence: AR)
  Receive Date: 20150720
  Receipt Date: 20150805
  Transmission Date: 20151125
  Serious: No
  Sender: FDA-Public Use
  Company Number: PHHY2015AR082058

PATIENT
  Sex: Male

DRUGS (1)
  1. ULTIBRO BREEZHALER [Suspect]
     Active Substance: GLYCOPYRRONIUM\INDACATEROL
     Indication: CHRONIC OBSTRUCTIVE PULMONARY DISEASE
     Dosage: 1 DF, QD (DAILY IN THE MORNING)
     Route: 065

REACTIONS (6)
  - Agitation [Recovering/Resolving]
  - Insomnia [Recovering/Resolving]
  - Memory impairment [Recovering/Resolving]
  - Anger [Recovering/Resolving]
  - Distractibility [Recovering/Resolving]
  - Anxiety [Recovering/Resolving]
